FAERS Safety Report 8126490-9 (Version None)
Quarter: 2012Q1

REPORT INFORMATION
  Report Type: 
  Country: None (occurrence: None)
  Receive Date: 20120209
  Receipt Date: 20120201
  Transmission Date: 20120608
  Serious: Yes (Other)
  Sender: FDA-Public Use
  Company Number: US-ASTRAZENECA-2010SE54153

PATIENT
  Age: 62 Year
  Sex: Female

DRUGS (1)
  1. NEXIUM [Suspect]
     Route: 048

REACTIONS (6)
  - ABDOMINAL DISTENSION [None]
  - NEOPLASM MALIGNANT [None]
  - MALAISE [None]
  - DRUG DOSE OMISSION [None]
  - ILL-DEFINED DISORDER [None]
  - PROSTHESIS USER [None]
